FAERS Safety Report 9220311 (Version 1)
Quarter: 2013Q2

REPORT INFORMATION
  Report Type: Spontaneous
  Country: GB (occurrence: None)
  Receive Date: 20130405
  Receipt Date: 20130405
  Transmission Date: 20140414
  Serious: Yes (Other)
  Sender: FDA-Public Use
  Company Number: AUR-APL-2013-02600

PATIENT
  Age: 74 Year
  Sex: Male
  Weight: 101 kg

DRUGS (6)
  1. BISOPROLOL [Suspect]
     Indication: PRODUCT USED FOR UNKNOWN INDICATION
     Dates: start: 20130308
  2. AMOXICILLIN (AMOXICILLIN) [Concomitant]
  3. ASPIRIN (ACETYLSALICYLIC ACID) [Concomitant]
  4. DICLOFENAC SODIUM (DICLOFENAC SODIUM) [Concomitant]
  5. RAMIPRIL (RAMIPRIL) [Concomitant]
  6. SALBUTAMOL (SALBUTAMOL) [Concomitant]

REACTIONS (2)
  - Dyspnoea [None]
  - Wheezing [None]
